FAERS Safety Report 9320343 (Version 1)
Quarter: 2013Q2

REPORT INFORMATION
  Report Type: Spontaneous
  Country: US (occurrence: US)
  Receive Date: 20130530
  Receipt Date: 20130530
  Transmission Date: 20140414
  Serious: Yes (Hospitalization)
  Sender: FDA-Public Use
  Company Number: US-ELI_LILLY_AND_COMPANY-US201108008601

PATIENT
  Age: 54 Year
  Sex: Female

DRUGS (15)
  1. FORTEO [Suspect]
     Indication: OSTEOPOROSIS
     Dosage: 20 UG, QD
     Route: 065
     Dates: start: 20110727
  2. FORTEO [Suspect]
     Dosage: 20 UG, QD
     Route: 065
  3. FORTEO [Suspect]
     Dosage: 20 UG, QD
  4. ADVAIR [Concomitant]
     Dosage: 100/50
  5. SINGULAIR [Concomitant]
     Dosage: 10 MG, UNK
  6. ALEVE                              /00256202/ [Concomitant]
     Dosage: 220 MG, UNK
  7. FLEXERIL                           /00428402/ [Concomitant]
     Indication: MUSCLE SPASMS
     Dosage: 10 MG, UNK
  8. TRAMADOL                           /00599201/ [Concomitant]
     Indication: PAIN
     Dosage: 50 MG, UNK
  9. PATANOL [Concomitant]
     Dosage: EYE DROPS, PRN
  10. FLONASE [Concomitant]
     Indication: MULTIPLE ALLERGIES
     Dosage: NASAL SPRAY, PRN
  11. CALCIUM                                 /N/A/ [Concomitant]
     Dosage: 800 MG, UNK
  12. MAGNESIUM [Concomitant]
     Dosage: 500 MG, UNK
  13. VITAMIN D                          /00107901/ [Concomitant]
     Dosage: 2000 IU, UNK
  14. FISH OIL [Concomitant]
  15. LIPITOR [Concomitant]
     Dosage: 40 MG, UNK

REACTIONS (7)
  - Bone fragmentation [Unknown]
  - Intervertebral disc protrusion [Unknown]
  - Dysgeusia [Unknown]
  - Dysgeusia [Recovered/Resolved]
  - Abdominal pain upper [Unknown]
  - Erythema [Unknown]
  - Injection site erythema [Unknown]
